FAERS Safety Report 21210817 (Version 1)
Quarter: 2022Q3

REPORT INFORMATION
  Report Type: Spontaneous
  Country: US (occurrence: US)
  Receive Date: 20220815
  Receipt Date: 20220815
  Transmission Date: 20221027
  Serious: Yes (Other)
  Sender: FDA-Public Use
  Company Number: US-BRISTOL-MYERS SQUIBB COMPANY-2022-084653

PATIENT
  Age: 73 Year
  Sex: Female

DRUGS (15)
  1. SPRYCEL [Suspect]
     Active Substance: DASATINIB
     Indication: Chronic myeloid leukaemia
     Dosage: DOSE : UNAVAILABLE;     FREQ : UNAVAILABLE
  2. SPRYCEL [Suspect]
     Active Substance: DASATINIB
     Indication: Malabsorption
  3. VITAMIN B COMPLEX [CYANOCOBALAMIN] [Concomitant]
  4. VITAMIN D NOS [Concomitant]
     Active Substance: VITAMIN D NOS
  5. ASCORBIC ACID\SODIUM ASCORBATE [Concomitant]
     Active Substance: ASCORBIC ACID\SODIUM ASCORBATE
  6. ZETIA [Concomitant]
     Active Substance: EZETIMIBE
  7. ALLOPURINOL [Concomitant]
     Active Substance: ALLOPURINOL
  8. FUROSEMIDE [Concomitant]
     Active Substance: FUROSEMIDE
  9. ASPIRIN [Concomitant]
     Active Substance: ASPIRIN
  10. LOSARTAN POTASSIUM [Concomitant]
     Active Substance: LOSARTAN POTASSIUM
  11. LEVOTHYROXINE SODIUM [Concomitant]
     Active Substance: LEVOTHYROXINE SODIUM
  12. METOPROLOL SUCCINATE [Concomitant]
     Active Substance: METOPROLOL SUCCINATE
  13. AMIODARONE HYDROCHLORIDE [Concomitant]
     Active Substance: AMIODARONE HYDROCHLORIDE
  14. BOSULIF [Concomitant]
     Active Substance: BOSUTINIB MONOHYDRATE
  15. TYLENOL PM, EXTRA STRENGTH [Concomitant]

REACTIONS (2)
  - Drug ineffective [Unknown]
  - Off label use [Unknown]
